FAERS Safety Report 10053607 (Version 2)
Quarter: 2014Q2

REPORT INFORMATION
  Report Type: Spontaneous
  Country: US (occurrence: US)
  Receive Date: 20140402
  Receipt Date: 20140409
  Transmission Date: 20141212
  Serious: Yes (Other)
  Sender: FDA-Public Use
  Company Number: US-BAXTER-2014BAX015894

PATIENT
  Sex: Male
  Weight: 98.18 kg

DRUGS (7)
  1. DIANEAL LOW CALCIUM [Suspect]
     Indication: RENAL FAILURE CHRONIC
     Route: 033
     Dates: start: 201106
  2. DIANEAL LOW CALCIUM [Suspect]
     Dosage: LAST FILL
     Route: 033
     Dates: start: 201106
  3. DIANEAL LOW CALCIUM [Suspect]
     Indication: RENAL FAILURE CHRONIC
     Route: 033
     Dates: start: 201106
  4. DIANEAL LOW CALCIUM [Suspect]
     Dosage: LASTFILL
     Route: 033
     Dates: start: 201106
  5. DIANEAL LOW CALCIUM [Suspect]
     Indication: RENAL FAILURE CHRONIC
     Route: 033
     Dates: start: 201106
  6. DIANEAL LOW CALCIUM [Suspect]
     Route: 033
     Dates: start: 201106
  7. DIANEAL LOW CALCIUM (ULTRABAG) [Suspect]
     Indication: RENAL FAILURE CHRONIC
     Route: 033
     Dates: start: 201106

REACTIONS (2)
  - Heart valve incompetence [Not Recovered/Not Resolved]
  - Fluid overload [Not Recovered/Not Resolved]
